FAERS Safety Report 25592265 (Version 1)
Quarter: 2025Q3

REPORT INFORMATION
  Report Type: Report from Study
  Country: US (occurrence: US)
  Receive Date: 20250722
  Receipt Date: 20250722
  Transmission Date: 20251021
  Serious: Yes (Hospitalization, Other)
  Sender: RECORDATI
  Company Number: US-ORPHANEU-2025005054

PATIENT
  Sex: Male

DRUGS (3)
  1. ISTURISA [Suspect]
     Active Substance: OSILODROSTAT PHOSPHATE
     Indication: Product used for unknown indication
     Dates: start: 20200722
  2. ISTURISA [Suspect]
     Active Substance: OSILODROSTAT PHOSPHATE
     Dates: start: 2025
  3. SIGNIFOR [Suspect]
     Active Substance: PASIREOTIDE DIASPARTATE
     Indication: Product used for unknown indication

REACTIONS (3)
  - Acute kidney injury [Unknown]
  - Dehydration [Unknown]
  - Adrenal insufficiency [Unknown]

NARRATIVE: CASE EVENT DATE: 20250101
